FAERS Safety Report 7213631-0 (Version None)
Quarter: 2010Q4

REPORT INFORMATION
  Report Type: 
  Country: None (occurrence: None)
  Receive Date: 20101126
  Receipt Date: 20091215
  Transmission Date: 20110411
  Serious: Yes (Other)
  Sender: FDA-Public Use
  Company Number: WAES 0912USA01904

PATIENT
  Age: 79 Year
  Sex: Female

DRUGS (7)
  1. FOSAMAX [Suspect]
     Dosage: PO
     Route: 048
  2. BONIVA [Suspect]
     Indication: OSTEOPOROSIS
     Dosage: 150 MG/MTH/PO
     Route: 048
     Dates: start: 20060101
  3. CALCIUM (UNSPECIFIED) [Concomitant]
  4. DIMETHYL SULFONE [Concomitant]
  5. GLUCOSAMINE [Concomitant]
  6. OMEGA-3 MARINE TRIGLYCERIDES [Concomitant]
  7. VITAMIN D (UNSPECIFIED) [Concomitant]

REACTIONS (1)
  - ALOPECIA [None]
